FAERS Safety Report 25545522 (Version 5)
Quarter: 2025Q3

REPORT INFORMATION
  Report Type: Spontaneous
  Country: BR (occurrence: BR)
  Receive Date: 20250711
  Receipt Date: 20250909
  Transmission Date: 20251020
  Serious: Yes (Hospitalization, Other)
  Sender: VERITY PHARMACEUTICALS INC.
  Company Number: BR-VER-202500006

PATIENT
  Age: 10 Year
  Sex: Female
  Weight: 45 kg

DRUGS (2)
  1. TRIPTORELIN PAMOATE [Suspect]
     Active Substance: TRIPTORELIN PAMOATE
     Indication: Delayed puberty
     Dosage: POWDER FOR PROLONGED-RELEASE SUSPENSION FOR INJECTION
     Route: 030
     Dates: start: 202404, end: 202412
  2. TRIPTORELIN PAMOATE [Suspect]
     Active Substance: TRIPTORELIN PAMOATE
     Indication: Product use in unapproved indication
     Dosage: POWDER FOR PROLONGED-RELEASE SUSPENSION FOR INJECTION
     Route: 030
     Dates: start: 202404, end: 202412

REACTIONS (8)
  - Product administered to patient of inappropriate age [Unknown]
  - Product dose omission issue [Unknown]
  - Product use in unapproved indication [Unknown]
  - Intracranial pressure increased [Recovering/Resolving]
  - Intracranial pressure increased [Recovering/Resolving]
  - Blindness [Not Recovered/Not Resolved]
  - Optic neuritis [Recovered/Resolved with Sequelae]
  - Visual impairment [Unknown]

NARRATIVE: CASE EVENT DATE: 20240401
